FAERS Safety Report 9349566 (Version 1)
Quarter: 2013Q2

REPORT INFORMATION
  Report Type: Spontaneous
  Country: CH (occurrence: CH)
  Receive Date: 20130614
  Receipt Date: 20130614
  Transmission Date: 20140414
  Serious: Yes (Other)
  Sender: FDA-Public Use
  Company Number: CH-GLAXOSMITHKLINE-B0899068A

PATIENT
  Age: 63 Year
  Sex: Female
  Weight: 68 kg

DRUGS (7)
  1. ZANTAC [Suspect]
     Indication: PRODUCT USED FOR UNKNOWN INDICATION
     Dosage: 50MG CYCLIC
     Route: 042
     Dates: start: 20120925
  2. ONDANSETRON [Suspect]
     Indication: PRODUCT USED FOR UNKNOWN INDICATION
     Dosage: 8MG CYCLIC
     Route: 042
     Dates: start: 20120925
  3. DEXAMETHASONE [Suspect]
     Indication: PRODUCT USED FOR UNKNOWN INDICATION
     Dosage: 20MG CYCLIC
     Route: 048
     Dates: start: 20120925
  4. TAVEGYL [Suspect]
     Indication: PRODUCT USED FOR UNKNOWN INDICATION
     Dosage: 2MG CYCLIC
     Route: 042
     Dates: start: 20120925
  5. AVASTIN (BEVACIZUMAB) [Suspect]
     Indication: PRODUCT USED FOR UNKNOWN INDICATION
     Dosage: 1000MG AS REQUIRED
     Route: 042
     Dates: start: 20120925
  6. TAXOL [Suspect]
     Indication: PRODUCT USED FOR UNKNOWN INDICATION
     Dosage: 285MG CYCLIC
     Route: 042
     Dates: start: 20120925, end: 20130116
  7. CARBOPLATIN [Suspect]
     Indication: OVARIAN CANCER
     Dosage: 640MG CYCLIC
     Route: 042
     Dates: start: 20120925, end: 20130116

REACTIONS (5)
  - Rash erythematous [Recovered/Resolved]
  - Feeling hot [Unknown]
  - Dyspnoea [Unknown]
  - Tachycardia [Unknown]
  - Hypersensitivity [Unknown]
